FAERS Safety Report 24613192 (Version 2)
Quarter: 2024Q4

REPORT INFORMATION
  Report Type: Report from Study
  Country: US (occurrence: US)
  Receive Date: 20241113
  Receipt Date: 20241118
  Transmission Date: 20250115
  Serious: Yes (Other)
  Sender: ROCHE
  Company Number: US-ROCHE-10000130453

PATIENT

DRUGS (1)
  1. ALTEPLASE [Suspect]
     Active Substance: ALTEPLASE
     Indication: Product used for unknown indication
     Dosage: 1-MG/ML DOSE WAS DEPENDENT ON PATIENT WEIGHT AND LINE TYPE
     Route: 065

REACTIONS (1)
  - Device related sepsis [Unknown]
